FAERS Safety Report 20453468 (Version 2)
Quarter: 2022Q1

REPORT INFORMATION
  Report Type: Spontaneous
  Country: US (occurrence: US)
  Receive Date: 20220210
  Receipt Date: 20220221
  Transmission Date: 20220424
  Serious: No
  Sender: FDA-Public Use
  Company Number: US-CELGENE-USA-20220201486

PATIENT
  Age: 75 Year
  Sex: Female

DRUGS (3)
  1. POMALYST [Suspect]
     Active Substance: POMALIDOMIDE
     Indication: Plasma cell myeloma
     Dosage: 4 MILLIGRAM
     Route: 048
     Dates: start: 20220119, end: 20220203
  2. ACYCLOVIR [Concomitant]
     Active Substance: ACYCLOVIR
     Indication: Product used for unknown indication
     Route: 065
     Dates: start: 2019
  3. BACTRIM [Concomitant]
     Active Substance: SULFAMETHOXAZOLE\TRIMETHOPRIM
     Indication: Product used for unknown indication
     Route: 065
     Dates: start: 2020, end: 20211230

REACTIONS (1)
  - Full blood count decreased [Recovering/Resolving]

NARRATIVE: CASE EVENT DATE: 20220203
